FAERS Safety Report 11912818 (Version 1)
Quarter: 2016Q1

REPORT INFORMATION
  Report Type: Spontaneous
  Country: US (occurrence: US)
  Receive Date: 20160113
  Receipt Date: 20160113
  Transmission Date: 20160526
  Serious: No
  Sender: FDA-Public Use
  Company Number: US-BAYER-2016-006905

PATIENT
  Age: 66 Year
  Sex: Female
  Weight: 85.26 kg

DRUGS (1)
  1. MIRALAX [Suspect]
     Active Substance: POLYETHYLENE GLYCOL 3350
     Indication: CONSTIPATION
     Dosage: 1/2 DF,QD
     Route: 048
     Dates: start: 20151216

REACTIONS (2)
  - Product use issue [None]
  - Drug ineffective [None]
